FAERS Safety Report 4711479-X (Version None)
Quarter: 2005Q3

REPORT INFORMATION
  Report Type: 
  Country: None (occurrence: None)
  Receive Date: 20050711
  Receipt Date: 20050628
  Transmission Date: 20060218
  Serious: Yes (Hospitalization)
  Sender: FDA-Public Use
  Company Number: COV2-2005-00086

PATIENT
  Age: 73 Year
  Sex: Female

DRUGS (6)
  1. FOSRENOL [Suspect]
     Indication: HYPERPHOSPHATAEMIA
     Dosage: 250 MG, 3X/DAY:TID, ORAL
     Route: 048
     Dates: start: 20050524
  2. EPOETIN ALFA (EPOETIN ALFA) [Concomitant]
  3. DIOVAN [Concomitant]
  4. SYNTHROID [Concomitant]
  5. ZEMPLAR [Concomitant]
  6. KOBAL-FERRLECIT FOR INJECTION (SODIUM-IRON-GLUCONATE COMPLEX, SODIUM-C [Concomitant]

REACTIONS (7)
  - ARRHYTHMIA [None]
  - ASTHENIA [None]
  - BLOOD PRESSURE DIASTOLIC DECREASED [None]
  - BLOOD PRESSURE SYSTOLIC INCREASED [None]
  - DIZZINESS [None]
  - HAEMATOCRIT DECREASED [None]
  - SYNCOPE [None]
